FAERS Safety Report 7622521-0 (Version None)
Quarter: 2011Q3

REPORT INFORMATION
  Report Type: 
  Country: None (occurrence: None)
  Receive Date: 20110712
  Receipt Date: 20110705
  Transmission Date: 20111222
  Serious: Yes (Life-Threatening)
  Sender: FDA-Public Use
  Company Number: 2011SP023020

PATIENT
  Age: 81 Year
  Sex: Female
  Weight: 36 kg

DRUGS (6)
  1. REMIFENTANIL (REMIFENTANIL) [Suspect]
     Indication: GENERAL ANAESTHESIA
     Dosage: 1.2 MCG; INDRP
     Route: 041
     Dates: start: 20110131, end: 20110131
  2. SEVOFLURANE [Suspect]
     Indication: GENERAL ANAESTHESIA
     Dosage: 20 ML; INH
     Route: 055
     Dates: start: 20110131, end: 20110131
  3. PROPOFOL [Suspect]
     Indication: GENERAL ANAESTHESIA
     Dosage: 30 MG; IV
     Route: 042
     Dates: start: 20110131, end: 20110131
  4. EPHEDRINE SUL CAP [Suspect]
     Indication: GENERAL ANAESTHESIA
     Dosage: 14 MG; IV
     Route: 042
     Dates: start: 20110131, end: 20110131
  5. PHENYLEPHRINE HCL [Suspect]
     Indication: GENERAL ANAESTHESIA
     Dosage: 0.3 MG; IV
     Route: 042
     Dates: start: 20110131, end: 20110131
  6. ROCURONIUM BROMIDE [Suspect]
     Indication: NEUROMUSCULAR BLOCKING THERAPY
     Dosage: 24 MG;ONCE;IV
     Route: 042
     Dates: start: 20110131, end: 20110131

REACTIONS (3)
  - IDIOPATHIC THROMBOCYTOPENIC PURPURA [None]
  - OPERATIVE HAEMORRHAGE [None]
  - EPISTAXIS [None]
